FAERS Safety Report 6671960-3 (Version None)
Quarter: 2010Q2

REPORT INFORMATION
  Report Type: 
  Country: None (occurrence: None)
  Receive Date: 20100407
  Receipt Date: 20100329
  Transmission Date: 20101027
  Serious: Yes (Other)
  Sender: FDA-Public Use
  Company Number: US-AMGEN-QUU401055

PATIENT
  Sex: Female

DRUGS (1)
  1. ENBREL [Suspect]
     Indication: RHEUMATOID ARTHRITIS
     Route: 058
     Dates: start: 20040929

REACTIONS (12)
  - ABDOMINAL DISCOMFORT [None]
  - ABDOMINAL DISTENSION [None]
  - BACK PAIN [None]
  - BLOOD PRESSURE INCREASED [None]
  - BRONCHITIS [None]
  - DEPRESSION [None]
  - ENDOSCOPY UPPER GASTROINTESTINAL TRACT [None]
  - HEADACHE [None]
  - NAUSEA [None]
  - POST-TRAUMATIC STRESS DISORDER [None]
  - RHEUMATOID ARTHRITIS [None]
  - SINUSITIS [None]
